FAERS Safety Report 9352410 (Version 1)
Quarter: 2013Q2

REPORT INFORMATION
  Report Type: Spontaneous
  Country: BR (occurrence: BR)
  Receive Date: 20130617
  Receipt Date: 20130617
  Transmission Date: 20140414
  Serious: Yes (Death)
  Sender: FDA-Public Use
  Company Number: BR-ELI_LILLY_AND_COMPANY-BR201306001982

PATIENT
  Age: 88 Year
  Sex: Female
  Weight: 53 kg

DRUGS (4)
  1. FORTEO [Suspect]
     Indication: OSTEOPOROSIS
     Dosage: 20 UG, QD
     Route: 058
     Dates: start: 201301, end: 20130526
  2. FUROSEMIDA                         /00032601/ [Concomitant]
     Indication: HYPERTENSION
     Dosage: 40 MG, QD
     Route: 065
  3. GLIBENCLAMIDA [Concomitant]
     Indication: TYPE 1 DIABETES MELLITUS
     Dosage: 5 MG, QD
     Route: 065
  4. ALDACTONE                          /00006201/ [Concomitant]
     Dosage: 100 MG, QD
     Route: 065

REACTIONS (1)
  - Myocardial infarction [Fatal]
